FAERS Safety Report 16014943 (Version 1)
Quarter: 2019Q1

REPORT INFORMATION
  Report Type: Spontaneous
  Country: US (occurrence: US)
  Receive Date: 20190227
  Receipt Date: 20190227
  Transmission Date: 20190418
  Serious: No
  Sender: FDA-Public Use
  Company Number: US-CELGENEUS-USA-20190207720

PATIENT
  Age: 88 Year
  Sex: Female

DRUGS (6)
  1. THALOMID [Suspect]
     Active Substance: THALIDOMIDE
     Dosage: 50 MILLIGRAM
     Route: 048
     Dates: start: 201609
  2. THALOMID [Suspect]
     Active Substance: THALIDOMIDE
     Dosage: 50 MILLIGRAM
     Route: 048
     Dates: start: 20180306
  3. THALOMID [Suspect]
     Active Substance: THALIDOMIDE
     Indication: GASTROINTESTINAL ANGIODYSPLASIA
     Dosage: 50 MILLIGRAM
     Route: 048
     Dates: start: 201512
  4. THALOMID [Suspect]
     Active Substance: THALIDOMIDE
     Indication: OFF LABEL USE
     Dosage: 100 MILLIGRAM
     Route: 048
     Dates: start: 201602
  5. THALOMID [Suspect]
     Active Substance: THALIDOMIDE
     Dosage: 50 MILLIGRAM
     Route: 048
     Dates: start: 201603
  6. TOBRAMYCIN. [Concomitant]
     Active Substance: TOBRAMYCIN
     Indication: PRODUCT USED FOR UNKNOWN INDICATION
     Route: 065

REACTIONS (4)
  - Ocular hyperaemia [Not Recovered/Not Resolved]
  - Weight increased [Not Recovered/Not Resolved]
  - Swelling face [Not Recovered/Not Resolved]
  - Erythema [Not Recovered/Not Resolved]

NARRATIVE: CASE EVENT DATE: 201901
